FAERS Safety Report 6581474-7 (Version None)
Quarter: 2010Q1

REPORT INFORMATION
  Report Type: 
  Country: None (occurrence: None)
  Receive Date: 20100215
  Receipt Date: 20091023
  Transmission Date: 20100710
  Serious: Yes (Hospitalization, Other)
  Sender: FDA-Public Use
  Company Number: B0498236A

PATIENT
  Sex: Male
  Weight: 75 kg

DRUGS (8)
  1. AVANDAMET [Suspect]
     Dosage: 2MG TWICE PER DAY
     Route: 048
     Dates: start: 20060427, end: 20070701
  2. ACUILIX [Concomitant]
     Route: 065
  3. AMLOR [Concomitant]
     Dosage: 5MG PER DAY
     Route: 065
  4. STILNOX [Concomitant]
     Route: 065
  5. AMAREL [Concomitant]
     Dosage: 4MG PER DAY
     Route: 065
  6. CORTANCYL [Concomitant]
     Dosage: 10MG PER DAY
     Route: 065
  7. PERMIXON [Concomitant]
     Route: 065
  8. KESTIN [Concomitant]
     Dosage: 10MG PER DAY
     Route: 065

REACTIONS (10)
  - ATRIAL TACHYCARDIA [None]
  - CARDIAC FAILURE [None]
  - CREPITATIONS [None]
  - DYSPNOEA AT REST [None]
  - DYSPNOEA EXERTIONAL [None]
  - OEDEMA PERIPHERAL [None]
  - ORTHOPNOEA [None]
  - PULMONARY OEDEMA [None]
  - RENAL FAILURE [None]
  - TACHYCARDIA [None]
